FAERS Safety Report 12010880 (Version 1)
Quarter: 2016Q1

REPORT INFORMATION
  Report Type: Spontaneous
  Country: US (occurrence: US)
  Receive Date: 20160205
  Receipt Date: 20160205
  Transmission Date: 20160526
  Serious: No
  Sender: FDA-Public Use
  Company Number: US-ACTELION PHARMACEUTICALS US, INC.-A-US2016-130985

PATIENT
  Age: 53 Year
  Sex: Female

DRUGS (9)
  1. AZELASTINE [Concomitant]
     Active Substance: AZELASTINE
  2. CLARITIN [Concomitant]
     Active Substance: LORATADINE
  3. METOLAZONE. [Concomitant]
     Active Substance: METOLAZONE
  4. POTASSIUM [Concomitant]
     Active Substance: POTASSIUM
  5. COMBIVENT RESPIMAT [Concomitant]
     Active Substance: ALBUTEROL SULFATE\IPRATROPIUM BROMIDE
  6. OPSUMIT [Suspect]
     Active Substance: MACITENTAN
     Indication: PULMONARY ARTERIAL HYPERTENSION
     Dosage: UNK
     Route: 048
     Dates: start: 20150619
  7. RIOCIGUAT [Concomitant]
     Active Substance: RIOCIGUAT
  8. TORSEMIDE. [Concomitant]
     Active Substance: TORSEMIDE
  9. CYANOCOBALAMIN. [Concomitant]
     Active Substance: CYANOCOBALAMIN

REACTIONS (1)
  - Musculoskeletal discomfort [Unknown]

NARRATIVE: CASE EVENT DATE: 20160201
